FAERS Safety Report 16664411 (Version 1)
Quarter: 2019Q3

REPORT INFORMATION
  Report Type: Spontaneous
  Country: CA (occurrence: CA)
  Receive Date: 20190802
  Receipt Date: 20190802
  Transmission Date: 20191004
  Serious: Yes (Congenital Anomaly, Other)
  Sender: FDA-Public Use
  Company Number: CA-TEVA-2019-CA-1085278

PATIENT
  Age: 40 Year
  Sex: Female

DRUGS (20)
  1. SALBUTAMOL [Suspect]
     Active Substance: ALBUTEROL
     Indication: PRODUCT USED FOR UNKNOWN INDICATION
     Route: 065
  2. ARNUITY ELLIPTA [Suspect]
     Active Substance: FLUTICASONE FUROATE
     Indication: PRODUCT USED FOR UNKNOWN INDICATION
     Route: 065
  3. ATROVENT [Suspect]
     Active Substance: IPRATROPIUM BROMIDE
     Indication: PRODUCT USED FOR UNKNOWN INDICATION
     Route: 065
  4. SINGULAIR [Suspect]
     Active Substance: MONTELUKAST SODIUM
     Indication: PRODUCT USED FOR UNKNOWN INDICATION
     Route: 065
  5. ALVESCO [Suspect]
     Active Substance: CICLESONIDE
     Indication: PRODUCT USED FOR UNKNOWN INDICATION
     Route: 065
  6. TUDORZA GENUAIR FOR ORAL INHALATION. 1 INHALER WITH 30 ACTUATIONS + 1 [Suspect]
     Active Substance: ACLIDINIUM BROMIDE
     Indication: PRODUCT USED FOR UNKNOWN INDICATION
     Dosage: 2 DOSAGE FORMS DAILY;
     Route: 065
  7. SALBUTAMOL SULFATE [Suspect]
     Active Substance: ALBUTEROL SULFATE
     Indication: PRODUCT USED FOR UNKNOWN INDICATION
     Route: 065
  8. TRAZODONE [Suspect]
     Active Substance: TRAZODONE HYDROCHLORIDE
     Indication: PRODUCT USED FOR UNKNOWN INDICATION
     Route: 065
  9. ZENHALE [Suspect]
     Active Substance: FORMOTEROL FUMARATE\MOMETASONE FUROATE
     Indication: PRODUCT USED FOR UNKNOWN INDICATION
     Dosage: 4 DOSAGE FORMS DAILY;
     Route: 065
  10. REACTINE [Concomitant]
  11. ACETYLSALICYLIC ACID [Concomitant]
     Active Substance: ASPIRIN
  12. ATOCK [Suspect]
     Active Substance: FORMOTEROL FUMARATE
     Indication: PRODUCT USED FOR UNKNOWN INDICATION
     Route: 065
  13. ONBREZ BREEZHALER CAPSULE CONTAINING FREE-FLOWING POWDER FOR ORAL INHA [Suspect]
     Active Substance: INDACATEROL MALEATE
     Route: 065
  14. ROSUVASTATIN. [Concomitant]
     Active Substance: ROSUVASTATIN
  15. GLYCOPYRRONIUM [Suspect]
     Active Substance: GLYCOPYRRONIUM
     Indication: PRODUCT USED FOR UNKNOWN INDICATION
     Route: 065
  16. SPIRIVA [Suspect]
     Active Substance: TIOTROPIUM BROMIDE MONOHYDRATE
     Indication: PRODUCT USED FOR UNKNOWN INDICATION
     Route: 065
  17. TECTA [Concomitant]
     Active Substance: PANTOPRAZOLE MAGNESIUM
  18. NOVORAPID [Suspect]
     Active Substance: INSULIN ASPART
     Indication: PRODUCT USED FOR UNKNOWN INDICATION
     Route: 065
  19. PULMICORT TURBUHALER [Suspect]
     Active Substance: BUDESONIDE
     Indication: PRODUCT USED FOR UNKNOWN INDICATION
     Route: 065
  20. EZETIMIBE. [Concomitant]
     Active Substance: EZETIMIBE

REACTIONS (26)
  - Asthma [Recovering/Resolving]
  - Depression [Recovering/Resolving]
  - Disability [Recovering/Resolving]
  - Polycystic ovaries [Recovering/Resolving]
  - Type 2 diabetes mellitus [Recovering/Resolving]
  - Weight decreased [Recovering/Resolving]
  - Restless legs syndrome [Recovering/Resolving]
  - Dyspnoea [Recovering/Resolving]
  - Pneumonia [Recovering/Resolving]
  - Pruritus [Recovering/Resolving]
  - Hypertension [Recovering/Resolving]
  - Restrictive pulmonary disease [Recovering/Resolving]
  - Skin lesion [Recovering/Resolving]
  - Drug ineffective [Recovering/Resolving]
  - Eczema [Recovering/Resolving]
  - Hyper IgE syndrome [Recovering/Resolving]
  - Myocardial infarction [Recovering/Resolving]
  - Abscess [Recovering/Resolving]
  - Blood test abnormal [Recovering/Resolving]
  - Condition aggravated [Recovering/Resolving]
  - Dyslipidaemia [Recovering/Resolving]
  - Gastrooesophageal reflux disease [Recovering/Resolving]
  - Coronary artery disease [Recovering/Resolving]
  - Cough [Recovering/Resolving]
  - Obstructive airways disorder [Recovering/Resolving]
  - Sleep apnoea syndrome [Recovering/Resolving]
